FAERS Safety Report 9046879 (Version 1)
Quarter: 2013Q1

REPORT INFORMATION
  Report Type: Spontaneous
  Country: US (occurrence: None)
  Receive Date: 20130129
  Receipt Date: 20130129
  Transmission Date: 20140127
  Serious: Yes (Other)
  Sender: FDA-Public Use
  Company Number: None

PATIENT
  Age: 28 Year
  Sex: Female
  Weight: 58.06 kg

DRUGS (3)
  1. CYMBALTA  30 MG  LILLY [Suspect]
     Indication: STRESS
     Route: 048
     Dates: start: 20121027, end: 20130120
  2. CYMBALTA  30 MG  LILLY [Suspect]
     Indication: ANXIETY
     Route: 048
     Dates: start: 20121027, end: 20130120
  3. CYMBALTA DULOXETINE HCL [Concomitant]

REACTIONS (11)
  - Constipation [None]
  - Libido decreased [None]
  - Influenza like illness [None]
  - Cold sweat [None]
  - Pain [None]
  - Chills [None]
  - Dizziness [None]
  - Paraesthesia [None]
  - Heart rate increased [None]
  - Movement disorder [None]
  - Lacrimation increased [None]
